FAERS Safety Report 9188086 (Version 2)
Quarter: 2013Q2

REPORT INFORMATION
  Report Type: Spontaneous
  Country: US (occurrence: US)
  Receive Date: 20130325
  Receipt Date: 20130423
  Transmission Date: 20140414
  Serious: No
  Sender: FDA-Public Use
  Company Number: US-PFIZER INC-2013095274

PATIENT
  Age: 48 Year
  Sex: Male
  Weight: 68 kg

DRUGS (4)
  1. LYRICA [Suspect]
     Indication: HEADACHE
     Dosage: 75 MG, 3X/DAY
     Route: 048
     Dates: start: 20130301
  2. LYRICA [Suspect]
     Indication: NEUROPATHY PERIPHERAL
     Dosage: 75 MG, 3X/DAY
     Route: 048
     Dates: start: 20130306, end: 20130312
  3. ATIVAN [Concomitant]
     Indication: CONVULSION
     Dosage: 1 MG, 2X/DAY (PRN)
  4. KEPPRA [Concomitant]
     Indication: CONVULSION
     Dosage: 1500 MG, 2X/DAY

REACTIONS (2)
  - Off label use [Unknown]
  - Eye colour change [Unknown]
